FAERS Safety Report 19922091 (Version 2)
Quarter: 2021Q4

REPORT INFORMATION
  Report Type: Report from Study
  Country: CA (occurrence: CA)
  Receive Date: 20211006
  Receipt Date: 20211027
  Transmission Date: 20220304
  Serious: Yes (Other)
  Sender: FDA-Public Use
  Company Number: NVSC2021CA223011

PATIENT
  Sex: Female

DRUGS (6)
  1. HYDROCORTISONE [Suspect]
     Active Substance: HYDROCORTISONE
     Indication: Inflammation
     Dosage: UNK
     Route: 065
  2. VITAMIN D [Concomitant]
     Active Substance: VITAMIN D NOS
     Indication: Product used for unknown indication
     Dosage: UNK
     Route: 065
  3. ROSIVER [Concomitant]
     Indication: Product used for unknown indication
     Dosage: UNK
     Route: 065
  4. LANSOPRAZOLE [Concomitant]
     Active Substance: LANSOPRAZOLE
     Indication: Congenital multiplex arthrogryposis
     Dosage: UNK
     Route: 065
  5. ATARAX [Concomitant]
     Active Substance: HYDROXYZINE HYDROCHLORIDE
     Indication: Chronic spontaneous urticaria
     Dosage: 1 DF, BID
     Route: 048
     Dates: start: 201911, end: 202011
  6. IRON [Concomitant]
     Active Substance: IRON
     Indication: Product used for unknown indication
     Dosage: UNK
     Route: 065

REACTIONS (13)
  - Angioedema [Unknown]
  - Idiopathic urticaria [Unknown]
  - Rhinitis [Unknown]
  - Asthma [Unknown]
  - Wheezing [Unknown]
  - Cough [Unknown]
  - Nasal congestion [Unknown]
  - Pruritus [Unknown]
  - Peripheral swelling [Unknown]
  - Swelling face [Unknown]
  - Skin disorder [Unknown]
  - Oedema [Unknown]
  - Sleep disorder [Unknown]
